FAERS Safety Report 17753405 (Version 1)
Quarter: 2020Q2

REPORT INFORMATION
  Report Type: Spontaneous
  Country: US (occurrence: US)
  Receive Date: 20200506
  Receipt Date: 20200506
  Transmission Date: 20200714
  Serious: No
  Sender: FDA-Public Use
  Company Number: US-ROCHE-2499590

PATIENT
  Sex: Male

DRUGS (6)
  1. TAR [Concomitant]
     Active Substance: TAR
  2. HYDROXYCHLOROQUINE [Concomitant]
     Active Substance: HYDROXYCHLOROQUINE
  3. ATORVASTATIN [Concomitant]
     Active Substance: ATORVASTATIN
  4. METOPROLOL. [Concomitant]
     Active Substance: METOPROLOL
  5. PHENAZOPYRIDINE. [Concomitant]
     Active Substance: PHENAZOPYRIDINE
  6. ESBRIET [Suspect]
     Active Substance: PIRFENIDONE
     Indication: MYOCARDIAL ISCHAEMIA
     Route: 048
     Dates: start: 20181221, end: 20191207

REACTIONS (3)
  - Off label use [Unknown]
  - No adverse event [Unknown]
  - Intentional product use issue [Unknown]
